FAERS Safety Report 17848824 (Version 1)
Quarter: 2020Q2

REPORT INFORMATION
  Report Type: Spontaneous
  Country: US (occurrence: US)
  Receive Date: 20200602
  Receipt Date: 20200602
  Transmission Date: 20200714
  Serious: No
  Sender: FDA-Public Use
  Company Number: US-JNJFOC-20200514851

PATIENT
  Sex: Male

DRUGS (1)
  1. IMODIUM MULTI-SYMPTOM RELIEF [Suspect]
     Active Substance: DIMETHICONE\LOPERAMIDE HYDROCHLORIDE
     Indication: GASTRIC DISORDER
     Dosage: 1 CAPLET 1 PILL LAST NIGHT AND 1 PILL THIS TODAY
     Route: 048
     Dates: start: 20200510, end: 20200511

REACTIONS (1)
  - Drug ineffective [Unknown]
